FAERS Safety Report 17683858 (Version 1)
Quarter: 2020Q2

REPORT INFORMATION
  Report Type: Other
  Country: US (occurrence: US)
  Receive Date: 20200420
  Receipt Date: 20200420
  Transmission Date: 20200714
  Serious: Yes (Death, Other)
  Sender: FDA-Public Use
  Company Number: US-MERZ PHARMACEUTICALS GMBH-20-01344

PATIENT

DRUGS (2)
  1. XEOMIN [Suspect]
     Active Substance: INCOBOTULINUMTOXINA
     Indication: SKIN COSMETIC PROCEDURE
  2. XEOMIN [Suspect]
     Active Substance: INCOBOTULINUMTOXINA
     Indication: SKIN WRINKLING

REACTIONS (24)
  - Injection site hypersensitivity [Unknown]
  - Headache [Unknown]
  - Fatigue [Unknown]
  - Dysphagia [Unknown]
  - Muscular weakness [Unknown]
  - Injection site pain [Unknown]
  - Injection site rash [Unknown]
  - Injection site swelling [Unknown]
  - Death [Fatal]
  - Breast cancer [Unknown]
  - Influenza like illness [Unknown]
  - Anxiety [Unknown]
  - Paraesthesia [Unknown]
  - Injection site bruising [Unknown]
  - Injection site haematoma [Unknown]
  - Facial paresis [Unknown]
  - Hypoaesthesia [Unknown]
  - Eyelid ptosis [Unknown]
  - Brow ptosis [Unknown]
  - Dizziness [Unknown]
  - Injection site erythema [Unknown]
  - Visual impairment [Unknown]
  - Nausea [Unknown]
  - Dyspnoea [Unknown]
